FAERS Safety Report 24018140 (Version 4)
Quarter: 2024Q4

REPORT INFORMATION
  Report Type: Spontaneous
  Country: US (occurrence: US)
  Receive Date: 20240627
  Receipt Date: 20241004
  Transmission Date: 20250114
  Serious: Yes (Other)
  Sender: BRISTOL MYERS SQUIBB
  Company Number: US-BRISTOL-MYERS SQUIBB COMPANY-2024-101816

PATIENT
  Age: 91 Year
  Sex: Male

DRUGS (3)
  1. LENALIDOMIDE [Suspect]
     Active Substance: LENALIDOMIDE
     Indication: Myelodysplastic syndrome
     Dosage: FREQUENCY: TAKE 1 CAPSULE (10MG TOTAL) BY MOUTH EVERY DAY FOR 21 DAYS
     Route: 048
  2. LENALIDOMIDE [Suspect]
     Active Substance: LENALIDOMIDE
     Dosage: TAKE 1 CAPSULE (5 MG TOTAL) BY MOUTH DAILY
     Route: 048
  3. LENALIDOMIDE [Suspect]
     Active Substance: LENALIDOMIDE
     Dosage: TAKE 1 CAPSULE BY MOUTH DAILY FOR 21 DAYS.
     Route: 048

REACTIONS (3)
  - Red blood cell count decreased [Unknown]
  - Platelet count decreased [Recovering/Resolving]
  - Pancytopenia [Recovering/Resolving]
